FAERS Safety Report 19660249 (Version 1)
Quarter: 2021Q3

REPORT INFORMATION
  Report Type: Spontaneous
  Country: US (occurrence: US)
  Receive Date: 20210805
  Receipt Date: 20210805
  Transmission Date: 20211014
  Serious: No
  Sender: FDA-Public Use
  Company Number: None

PATIENT
  Sex: Male

DRUGS (5)
  1. COLESTID [Suspect]
     Active Substance: COLESTIPOL HYDROCHLORIDE
  2. VSL#3 [Concomitant]
     Active Substance: PROBIOTICS NOS
  3. AMITRIPTYLINE [Suspect]
     Active Substance: AMITRIPTYLINE
  4. FLAGYL [Concomitant]
     Active Substance: METRONIDAZOLE\METRONIDAZOLE HYDROCHLORIDE
  5. PHILLIPS^ COLON HEALTH [Concomitant]
     Active Substance: PROBIOTICS NOS

REACTIONS (1)
  - Treatment failure [None]
